FAERS Safety Report 8275243-X (Version None)
Quarter: 2012Q2

REPORT INFORMATION
  Report Type: 
  Country: None (occurrence: None)
  Receive Date: 20120411
  Receipt Date: 20120404
  Transmission Date: 20120825
  Serious: Yes (Death, Other)
  Sender: FDA-Public Use
  Company Number: CA-ROCHE-1051821

PATIENT
  Age: 81 Year
  Sex: Female

DRUGS (1)
  1. ALTEPLASE [Suspect]
     Indication: ISCHAEMIC STROKE
     Dosage: POST-STENTING
     Route: 013

REACTIONS (3)
  - SUBARACHNOID HAEMORRHAGE [None]
  - CEREBRAL HAEMORRHAGE [None]
  - DEATH [None]
